FAERS Safety Report 23782291 (Version 1)
Quarter: 2024Q2

REPORT INFORMATION
  Report Type: Spontaneous
  Country: US (occurrence: US)
  Receive Date: 20240425
  Receipt Date: 20240425
  Transmission Date: 20240716
  Serious: Yes (Hospitalization)
  Sender: FDA-Public Use
  Company Number: US-AMGEN-USASP2024080418

PATIENT
  Age: 19 Year
  Sex: Female

DRUGS (1)
  1. INFLIXIMAB [Suspect]
     Active Substance: INFLIXIMAB
     Indication: Crohn^s disease
     Dosage: 5 MILLIGRAM/KILOGRAM, Q6WK
     Route: 065

REACTIONS (4)
  - Drug eruption [Recovering/Resolving]
  - Paradoxical skin reaction [Recovering/Resolving]
  - Staphylococcal infection [Unknown]
  - Off label use [Unknown]
